FAERS Safety Report 10250731 (Version 1)
Quarter: 2014Q2

REPORT INFORMATION
  Report Type: Spontaneous
  Country: GB (occurrence: GB)
  Receive Date: 20140620
  Receipt Date: 20140620
  Transmission Date: 20141212
  Serious: Yes (Other)
  Sender: FDA-Public Use
  Company Number: GB-ACORDA-ACO_104224_2014

PATIENT
  Sex: Female

DRUGS (1)
  1. FAMPYRA [Suspect]
     Indication: MULTIPLE SCLEROSIS
     Dosage: 10 MG, BID
     Route: 048

REACTIONS (2)
  - Hip fracture [Unknown]
  - Fall [Unknown]
